FAERS Safety Report 8958630 (Version 1)
Quarter: 2012Q4

REPORT INFORMATION
  Report Type: Spontaneous
  Country: US (occurrence: None)
  Receive Date: 20121203
  Receipt Date: 20121203
  Transmission Date: 20130627
  Serious: Yes (Hospitalization)
  Sender: FDA-Public Use
  Company Number: DSU-2012-09364

PATIENT
  Age: 77 Year
  Sex: Male
  Weight: 94.35 kg

DRUGS (1)
  1. TRIBENZOR [Suspect]
     Route: 048
     Dates: start: 201206, end: 201208

REACTIONS (5)
  - Liver abscess [None]
  - Dehydration [None]
  - Hyperhidrosis [None]
  - Delirium [None]
  - Weight decreased [None]
